FAERS Safety Report 21733244 (Version 1)
Quarter: 2022Q4

REPORT INFORMATION
  Report Type: Spontaneous
  Country: US (occurrence: US)
  Receive Date: 20221215
  Receipt Date: 20221215
  Transmission Date: 20230113
  Serious: No
  Sender: FDA-Public Use
  Company Number: US-BIOGEN-2022BI01174558

PATIENT
  Age: 48 Year
  Sex: Female

DRUGS (4)
  1. TECFIDERA [Suspect]
     Active Substance: DIMETHYL FUMARATE
     Indication: Product used for unknown indication
     Route: 050
     Dates: start: 2018
  2. TIZANIDINE [Concomitant]
     Active Substance: TIZANIDINE
     Route: 050
  3. MODAFINIL [Concomitant]
     Active Substance: MODAFINIL
     Route: 050
  4. MELATONIN [Concomitant]
     Active Substance: MELATONIN
     Route: 050

REACTIONS (2)
  - Iron deficiency anaemia [Not Recovered/Not Resolved]
  - Influenza like illness [Not Recovered/Not Resolved]

NARRATIVE: CASE EVENT DATE: 20180701
